FAERS Safety Report 22861292 (Version 3)
Quarter: 2024Q2

REPORT INFORMATION
  Report Type: Report from Study
  Country: CA (occurrence: CA)
  Receive Date: 20230824
  Receipt Date: 20240430
  Transmission Date: 20240716
  Serious: Yes (Death, Other)
  Sender: FDA-Public Use
  Company Number: CA-002147023-NVSC2023CA183593

PATIENT
  Age: 59 Year
  Sex: Female

DRUGS (1)
  1. MEKINIST [Suspect]
     Active Substance: TRAMETINIB DIMETHYL SULFOXIDE
     Indication: Ovarian cancer
     Dosage: UNK
     Route: 065
     Dates: start: 20210604, end: 20221122

REACTIONS (6)
  - Death [Fatal]
  - Cerebrovascular accident [Unknown]
  - Ovarian cancer [Unknown]
  - Malignant neoplasm progression [Unknown]
  - Skin toxicity [Recovering/Resolving]
  - Hypertension [Recovering/Resolving]

NARRATIVE: CASE EVENT DATE: 20210801
